FAERS Safety Report 6035735-0 (Version None)
Quarter: 2009Q1

REPORT INFORMATION
  Report Type: 
  Country: None (occurrence: None)
  Receive Date: 20090113
  Receipt Date: 20090105
  Transmission Date: 20090719
  Serious: Yes (Death, Other)
  Sender: FDA-Public Use
  Company Number: PR-AMGEN-QUU326848

PATIENT
  Sex: Male

DRUGS (5)
  1. ENBREL [Suspect]
     Indication: PSORIATIC ARTHROPATHY
  2. TARKA (ABBOTT LABS) [Suspect]
     Dates: end: 20061201
  3. UNSPECIFIED ANTIBIOTIC [Suspect]
     Indication: INFECTION
     Dates: start: 20061201
  4. HYDRODIURIL [Concomitant]
  5. COVERA-HS [Concomitant]

REACTIONS (3)
  - CARDIAC FAILURE CONGESTIVE [None]
  - PHARYNGITIS [None]
  - PULMONARY OEDEMA [None]
